FAERS Safety Report 11242900 (Version 1)
Quarter: 2015Q3

REPORT INFORMATION
  Report Type: Other
  Country: TW (occurrence: TW)
  Receive Date: 20150707
  Receipt Date: 20150707
  Transmission Date: 20151125
  Serious: Yes (Life-Threatening, Hospitalization)
  Sender: FDA-Public Use
  Company Number: TW-ORCHID HEALTHCARE-1040371

PATIENT
  Age: 45 Year
  Sex: Female

DRUGS (7)
  1. ZALEPLON. [Suspect]
     Active Substance: ZALEPLON
  2. QUETIAPINE FUMARATE. [Suspect]
     Active Substance: QUETIAPINE FUMARATE
  3. HYDROXYZINE [Suspect]
     Active Substance: HYDROXYZINE\HYDROXYZINE HYDROCHLORIDE
  4. SULPIRIDE [Suspect]
     Active Substance: SULPIRIDE
  5. MIRTAZAPINE. [Suspect]
     Active Substance: MIRTAZAPINE
  6. FLURAZEPAM [Suspect]
     Active Substance: FLURAZEPAM\FLURAZEPAM HYDROCHLORIDE
  7. LORAZEPAM. [Suspect]
     Active Substance: LORAZEPAM

REACTIONS (9)
  - Coma scale abnormal [Recovered/Resolved]
  - Benzodiazepine drug level [Recovered/Resolved]
  - Hypotension [Recovered/Resolved]
  - Sinus tachycardia [Recovered/Resolved]
  - Electrocardiogram QT prolonged [Recovered/Resolved]
  - Tachycardia [Recovered/Resolved]
  - Ventricular tachycardia [Recovered/Resolved]
  - Loss of consciousness [Recovered/Resolved]
  - Toxicity to various agents [Recovered/Resolved]
